FAERS Safety Report 6577868-6 (Version None)
Quarter: 2010Q1

REPORT INFORMATION
  Report Type: 
  Country: None (occurrence: None)
  Receive Date: 20100211
  Receipt Date: 20100202
  Transmission Date: 20100710
  Serious: Yes (Other)
  Sender: FDA-Public Use
  Company Number: IN-PFIZER INC-2010014642

PATIENT
  Age: 15 Year
  Sex: Male

DRUGS (2)
  1. GENOTROPIN [Suspect]
     Indication: GROWTH HORMONE DEFICIENCY
     Dosage: 5.4 IU, 1X/DAY
     Route: 058
     Dates: start: 20071101, end: 20100124
  2. GENOTROPIN [Suspect]
     Dosage: 6 IU, 1X/DAY
     Route: 058
     Dates: start: 20100125, end: 20100128

REACTIONS (3)
  - HEADACHE [None]
  - VISION BLURRED [None]
  - VOMITING [None]
